FAERS Safety Report 5037574-6 (Version None)
Quarter: 2006Q3

REPORT INFORMATION
  Report Type: 
  Country: None (occurrence: None)
  Receive Date: 20060628
  Receipt Date: 20060606
  Transmission Date: 20061208
  Serious: Yes (Hospitalization, Other)
  Sender: FDA-Public Use
  Company Number: NL-GLAXOSMITHKLINE-B0427266A

PATIENT
  Age: 74 Year
  Sex: Male
  Weight: 86 kg

DRUGS (7)
  1. AMOXICILLIN + CLAVULANATE POTASSIUM [Suspect]
     Dosage: 1200MG PER DAY
     Route: 065
     Dates: start: 20060511
  2. ADALAT [Concomitant]
     Dosage: 30MG PER DAY
     Route: 048
  3. PANTOZOL [Concomitant]
     Dosage: 40MG PER DAY
     Route: 048
  4. RENITEC [Concomitant]
     Dosage: 20MG PER DAY
     Route: 048
  5. SIMVASTATIN [Concomitant]
     Dosage: 40MG PER DAY
     Route: 048
  6. MONOCEDOCARD RETARD [Concomitant]
     Dosage: 50MG PER DAY
     Route: 048
  7. BISOPROLOL [Concomitant]
     Dosage: 2.5MG PER DAY
     Route: 048

REACTIONS (3)
  - LEUKOPENIA [None]
  - POST PROCEDURAL HAEMATOMA [None]
  - PYREXIA [None]
